FAERS Safety Report 25745167 (Version 4)
Quarter: 2025Q4

REPORT INFORMATION
  Report Type: Report from Study
  Country: GB (occurrence: GB)
  Receive Date: 20250901
  Receipt Date: 20251025
  Transmission Date: 20260118
  Serious: Yes (Other)
  Sender: NOVARTIS
  Company Number: GB-002147023-NVSC2025GB011567

PATIENT
  Sex: Male

DRUGS (3)
  1. COSENTYX [Suspect]
     Active Substance: SECUKINUMAB
     Indication: Spinal osteoarthritis
     Dosage: 150 MG, QMO (ADMINISTERED SITE ABDOMEN RIGHT, 2 PRE-FILLED DISPOSABLE INJECTION)
     Route: 058
     Dates: start: 20250917
  2. COSENTYX [Suspect]
     Active Substance: SECUKINUMAB
     Dosage: 150 MG, QW (WEEK 0, 1, 2, 3)
     Route: 058
  3. COSENTYX [Suspect]
     Active Substance: SECUKINUMAB
     Dosage: UNK
     Route: 065
     Dates: end: 20251009

REACTIONS (16)
  - Lower respiratory tract infection [Unknown]
  - Mouth swelling [Unknown]
  - Swelling face [Unknown]
  - Ear swelling [Unknown]
  - Swelling [Unknown]
  - Gingival swelling [Unknown]
  - Odynophagia [Unknown]
  - Chronic obstructive pulmonary disease [Unknown]
  - Malaise [Unknown]
  - Dyspnoea [Recovering/Resolving]
  - Asthma [Unknown]
  - Spondylitis [Unknown]
  - Illness [Unknown]
  - Dysphagia [Unknown]
  - Product use in unapproved indication [Unknown]
  - Inappropriate schedule of product administration [Unknown]
